FAERS Safety Report 8071576 (Version 2)
Quarter: 2018Q4

REPORT INFORMATION
  Report Type: Spontaneous
  Country: GB (occurrence: GB)
  Receive Date: 20110805
  Receipt Date: 20181226
  Transmission Date: 20190205
  Serious: Yes (Death, Other)
  Sender: FDA-Public Use
  Company Number: PHHY2011GB69376

PATIENT
  Age: 19 Year
  Sex: Female

DRUGS (5)
  1. SITAXENTAN [Interacting]
     Active Substance: SITAXENTAN
     Indication: PULMONARY ARTERIAL HYPERTENSION
     Dosage: 100 MG DAILY
     Route: 065
  2. SILDENAFIL. [Interacting]
     Active Substance: SILDENAFIL
     Indication: PULMONARY ARTERIAL HYPERTENSION
     Dosage: 150 MG, TID
     Route: 065
  3. DOMPERIDONE [Interacting]
     Active Substance: DOMPERIDONE
     Indication: PRODUCT USED FOR UNKNOWN INDICATION
     Route: 065
  4. OMEPRAZOLE. [Interacting]
     Active Substance: OMEPRAZOLE
     Indication: ILL-DEFINED DISORDER
     Route: 065
  5. AMOXICILLIN. [Suspect]
     Active Substance: AMOXICILLIN
     Indication: EAR INFECTION
     Dosage: UNK
     Route: 065

REACTIONS (6)
  - Jaundice [Fatal]
  - Drug interaction [Fatal]
  - Coagulopathy [Fatal]
  - Acute hepatic failure [Fatal]
  - Hepatic necrosis [Fatal]
  - Brain oedema [Fatal]
